FAERS Safety Report 7334536-0 (Version None)
Quarter: 2011Q1

REPORT INFORMATION
  Report Type: 
  Country: None (occurrence: None)
  Receive Date: 20110307
  Receipt Date: 20110207
  Transmission Date: 20110831
  Serious: No
  Sender: FDA-Public Use
  Company Number: US-KINGPHARMUSA00001-K201100130

PATIENT
  Sex: Female

DRUGS (1)
  1. EMBEDA [Suspect]
     Dosage: 50 MG, QD
     Dates: start: 20110201

REACTIONS (2)
  - INSOMNIA [None]
  - RESTLESSNESS [None]
